FAERS Safety Report 7479681-4 (Version None)
Quarter: 2011Q2

REPORT INFORMATION
  Report Type: 
  Country: None (occurrence: None)
  Receive Date: 20110513
  Receipt Date: 20110321
  Transmission Date: 20111010
  Serious: Yes (Other)
  Sender: FDA-Public Use
  Company Number: US-BAYER-2010-002825

PATIENT
  Sex: Female
  Weight: 149.66 kg

DRUGS (18)
  1. YASMIN [Suspect]
     Indication: PRODUCT USED FOR UNKNOWN INDICATION
     Dosage: UNK
     Dates: start: 20010101, end: 20100101
  2. ACIPHEX [Concomitant]
     Dosage: 20 MG, UNK
  3. LORATADINE [Concomitant]
     Dosage: 10 MG, UNK
  4. CHLORPHENIRAMINE W/PSEUDOEPHEDRINE [Concomitant]
  5. FERROUS SULFATE TAB [Concomitant]
     Dosage: 325 MG, UNK
  6. DIFLUCAN [Concomitant]
     Dosage: 150 MG, UNK
  7. OMEPRAZOLE [Concomitant]
     Dosage: 20 MG, UNK
  8. CELEBREX [Concomitant]
     Dosage: 200 MG, UNK
  9. METHOCARBAMOL [Concomitant]
     Dosage: 750 MG, UNK
  10. GABAPENTIN [Concomitant]
     Dosage: 60 MG, UNK
  11. PROTONIX [Concomitant]
     Dosage: 40 MG, UNK
  12. HYDROCODONE BITARTRATE AND ACETAMINOPHEN [Concomitant]
  13. AMITRIPTYLINE HCL [Concomitant]
     Dosage: 50 MG, UNK
  14. CYCLOBENZAPRINE [Concomitant]
     Dosage: 10 MG, UNK
  15. NAPROXEN [Concomitant]
     Dosage: 500 MG, UNK
  16. PROPOXYPHENE HYDROCHLORIDE [Concomitant]
  17. PROMETHAZINE [Concomitant]
     Dosage: 25 MG, UNK
  18. PSEUDOEPHEDRINE HCL [Concomitant]
     Dosage: 30 MG, UNK

REACTIONS (4)
  - ABDOMINAL PAIN [None]
  - CHOLELITHIASIS [None]
  - CHOLECYSTITIS [None]
  - GALLBLADDER DISORDER [None]
